FAERS Safety Report 10009196 (Version 1)
Quarter: 2014Q1

REPORT INFORMATION
  Report Type: Spontaneous
  Country: US (occurrence: US)
  Receive Date: 20140313
  Receipt Date: 20140313
  Transmission Date: 20141002
  Serious: No
  Sender: FDA-Public Use
  Company Number: US-GILEAD-2013-0072528

PATIENT
  Sex: Female

DRUGS (16)
  1. LETAIRIS [Suspect]
     Indication: PULMONARY HYPERTENSION
     Dosage: 5 MG, QD
     Route: 048
     Dates: start: 20130103
  2. SILDENAFIL [Concomitant]
  3. DIGOXIN [Concomitant]
  4. REPREXAIN [Concomitant]
  5. LASIX                              /00032601/ [Concomitant]
  6. LOVAZA [Concomitant]
  7. HYDROMORPHONE [Concomitant]
  8. VICODIN [Concomitant]
  9. PRAVASTATIN [Concomitant]
  10. PANTOPRAZOLE [Concomitant]
  11. AMIODARONE [Concomitant]
  12. QVAR [Concomitant]
  13. ACUVAIL [Concomitant]
  14. PEG                                /01543001/ [Concomitant]
  15. CARVEDILOL [Concomitant]
  16. SPIRIVA [Concomitant]

REACTIONS (7)
  - Exercise tolerance decreased [Unknown]
  - Anxiety [Unknown]
  - Fear [Unknown]
  - Oxygen consumption increased [Unknown]
  - Chest pain [Unknown]
  - Constipation [Unknown]
  - Headache [Unknown]
